FAERS Safety Report 6615928-1 (Version None)
Quarter: 2010Q1

REPORT INFORMATION
  Report Type: 
  Country: None (occurrence: None)
  Receive Date: 20100305
  Receipt Date: 20100224
  Transmission Date: 20100710
  Serious: Yes (Hospitalization)
  Sender: FDA-Public Use
  Company Number: GXKR2010JP02281

PATIENT
  Age: 73 Year
  Sex: Male

DRUGS (9)
  1. RIBAVIRIN (NGX) [Suspect]
     Indication: HEPATITIS C
     Dosage: 800 MG, UNK
     Dates: start: 20060201
  2. RIBAVIRIN (NGX) [Suspect]
     Dosage: 600 MG, UNK
  3. RIBAVIRIN (NGX) [Suspect]
     Dosage: 400 MG, UNK
     Dates: end: 20060725
  4. PEG-INTRON [Suspect]
     Indication: HEPATITIS C
     Dosage: 100 UG, UNK
     Dates: start: 20060201
  5. PEG-INTRON [Suspect]
     Dosage: 80 UG, UNK
     Dates: end: 20060725
  6. AMLODIPINE BESYLATE [Concomitant]
     Route: 065
  7. DOXAZOSIN MESYLATE [Concomitant]
     Route: 065
  8. CLONIDINE HYDROCHLORIDE [Concomitant]
     Route: 065
  9. URSODEOXYCHOLIC ACID [Concomitant]
     Route: 065

REACTIONS (11)
  - BLISTER [None]
  - EPIDERMAL NECROSIS [None]
  - ERYTHEMA [None]
  - FIXED ERUPTION [None]
  - INJECTION SITE REACTION [None]
  - PIGMENTATION DISORDER [None]
  - PRURITUS [None]
  - PYREXIA [None]
  - SKIN EROSION [None]
  - SKIN PLAQUE [None]
  - SWELLING [None]
